FAERS Safety Report 5572111-9 (Version None)
Quarter: 2007Q4

REPORT INFORMATION
  Report Type: 
  Country: None (occurrence: None)
  Receive Date: 20071219
  Receipt Date: 20071207
  Transmission Date: 20080405
  Serious: Yes (Hospitalization, Other)
  Sender: FDA-Public Use
  Company Number: 2007US001977

PATIENT
  Age: 6 Year
  Sex: Male
  Weight: 19.4 kg

DRUGS (18)
  1. PROGRAF [Suspect]
     Indication: KIDNEY TRANSPLANT REJECTION
     Dates: start: 20050913
  2. DACLIZUMAB(DACLIZUMAB) UNKNOWN, 15MG [Suspect]
     Indication: RENAL AND LIVER TRANSPLANT
     Dosage: SEE IMAGE
     Route: 042
     Dates: start: 20050914, end: 20050914
  3. DACLIZUMAB(DACLIZUMAB) UNKNOWN, 15MG [Suspect]
     Indication: RENAL AND LIVER TRANSPLANT
     Dosage: SEE IMAGE
     Route: 042
     Dates: start: 20050926, end: 20050926
  4. DACLIZUMAB(DACLIZUMAB) UNKNOWN, 15MG [Suspect]
     Indication: RENAL AND LIVER TRANSPLANT
     Dosage: SEE IMAGE
     Route: 042
     Dates: start: 20051010, end: 20051010
  5. DACLIZUMAB(DACLIZUMAB) UNKNOWN, 15MG [Suspect]
     Indication: RENAL AND LIVER TRANSPLANT
     Dosage: SEE IMAGE
     Route: 042
     Dates: start: 20051024, end: 20051024
  6. DACLIZUMAB(DACLIZUMAB) UNKNOWN, 15MG [Suspect]
     Indication: RENAL AND LIVER TRANSPLANT
     Dosage: SEE IMAGE
     Route: 042
     Dates: start: 20051114, end: 20051114
  7. FAMOTIDINE [Concomitant]
  8. ACETAMINOPHEN [Concomitant]
  9. ZOSYN [Concomitant]
  10. NYSTATIN [Concomitant]
  11. ERYTHROPOIETIN (ERYTHROPOIETIN) [Concomitant]
  12. POTASSIUM CHLORIDE [Concomitant]
  13. VANCOMYCIN HYDROCHLORIDE [Concomitant]
  14. MAGNESIUM SULFATE (MAGNESIUM SULFATE) FORMULATION UNKNOWN [Concomitant]
  15. CALCIUM GLUCONATE (CALCIUM GLUCONATE) FORMULATION UNKNOWN [Concomitant]
  16. SIMETHICONE (SIMETICONE) FORMULATION UNKNOWN [Concomitant]
  17. HYDROCORTISONE (HYDROCORTISONE HYDROGEN SUCCINATE) FORMULATION UNKNOWN [Concomitant]
  18. DIPHENHYDRAMINE (DIPHENHYDRAMINE) FORMULATION UNKNOWN [Concomitant]

REACTIONS (18)
  - ACCIDENT [None]
  - ADHESION [None]
  - BACTERAEMIA [None]
  - CANDIDURIA [None]
  - CATHETER RELATED COMPLICATION [None]
  - COMPLICATIONS OF TRANSPLANTED KIDNEY [None]
  - DIARRHOEA HAEMORRHAGIC [None]
  - FUNGAEMIA [None]
  - GASTROINTESTINAL NECROSIS [None]
  - INCISION SITE PAIN [None]
  - INJURY [None]
  - KLEBSIELLA SEPSIS [None]
  - PNEUMOTHORAX [None]
  - PROCEDURAL VOMITING [None]
  - RENAL IMPAIRMENT [None]
  - SMALL INTESTINAL OBSTRUCTION [None]
  - URETERIC OBSTRUCTION [None]
  - UROSEPSIS [None]
